FAERS Safety Report 4407542-3 (Version None)
Quarter: 2004Q3

REPORT INFORMATION
  Report Type: 
  Country: None (occurrence: None)
  Receive Date: 20040721
  Receipt Date: 20040707
  Transmission Date: 20050211
  Serious: Yes (Death)
  Sender: FDA-Public Use
  Company Number: 2004-DE-03743GD

PATIENT
  Sex: 0

DRUGS (2)
  1. ASPIRIN [Suspect]
  2. DICLOFENAC (DICLOFENAC) [Suspect]

REACTIONS (1)
  - GASTROINTESTINAL HAEMORRHAGE [None]
